FAERS Safety Report 11656176 (Version 1)
Quarter: 2015Q4

REPORT INFORMATION
  Report Type: Spontaneous
  Country: KR (occurrence: KR)
  Receive Date: 20151023
  Receipt Date: 20151023
  Transmission Date: 20160304
  Serious: Yes (Other)
  Sender: FDA-Public Use
  Company Number: KR-FRESENIUS KABI-FK201505236

PATIENT
  Age: 45 Year
  Sex: Female

DRUGS (2)
  1. DOXORUBICIN (MANUFACTURER UNKNOWN) [Suspect]
     Active Substance: DOXORUBICIN
     Indication: ADENOID CYSTIC CARCINOMA
     Route: 042
  2. CISPLATIN (MANUFACTURER UNKNOWN) [Suspect]
     Active Substance: CISPLATIN
     Indication: ADENOID CYSTIC CARCINOMA
     Route: 013

REACTIONS (4)
  - Facial pain [Unknown]
  - Oral discomfort [Unknown]
  - Erythema [Recovered/Resolved]
  - Swelling [Unknown]
